FAERS Safety Report 6571684-7 (Version None)
Quarter: 2010Q1

REPORT INFORMATION
  Report Type: 
  Country: None (occurrence: None)
  Receive Date: 20100205
  Receipt Date: 20100129
  Transmission Date: 20100710
  Serious: Yes (Other)
  Sender: FDA-Public Use
  Company Number: PHHY2010MX04920

PATIENT
  Age: 78 Year
  Sex: Male

DRUGS (3)
  1. EXELON [Suspect]
     Indication: DEMENTIA ALZHEIMER'S TYPE
     Dosage: 1 DF, QD
     Dates: start: 20091001
  2. LEXAPRO [Concomitant]
  3. NORVASC [Concomitant]

REACTIONS (2)
  - FALL [None]
  - SKELETAL INJURY [None]
